FAERS Safety Report 5013955-1 (Version None)
Quarter: 2006Q2

REPORT INFORMATION
  Report Type: 
  Country: None (occurrence: None)
  Receive Date: 20060525
  Receipt Date: 20060520
  Transmission Date: 20061013
  Serious: Yes (Death, Hospitalization)
  Sender: FDA-Public Use
  Company Number: 223516

PATIENT
  Age: 79 Year
  Sex: Female
  Weight: 67.3 kg

DRUGS (1)
  1. MABTHERA(RITUXIMAB) CONC FOR SOLUTION FOR INFUSION [Suspect]
     Indication: ANAEMIA HAEMOLYTIC AUTOIMMUNE
     Dates: start: 20060112, end: 20060112

REACTIONS (1)
  - LOWER RESPIRATORY TRACT INFECTION [None]
